FAERS Safety Report 5601004-3 (Version None)
Quarter: 2008Q1

REPORT INFORMATION
  Report Type: 
  Country: None (occurrence: None)
  Receive Date: 20080118
  Receipt Date: 20080111
  Transmission Date: 20080703
  Serious: Yes (Death, Hospitalization, Other)
  Sender: FDA-Public Use
  Company Number: 028-C5013-07101558

PATIENT
  Age: 47 Year
  Sex: Male

DRUGS (11)
  1. CC-5013 (LENALIDOMIDE) (CAPSULES) [Suspect]
     Indication: MULTIPLE MYELOMA
     Dosage: 25 MG, X21 DAYS OF 28 DAY CYCLE, ORAL
     Route: 048
     Dates: start: 20071011, end: 20071031
  2. DEXAMETHASONE TAB [Suspect]
     Indication: MULTIPLE MYELOMA
     Dosage: 20 MG, DAILY, DAYS 1-4, 9-12, 17-20, ORAL
     Route: 048
     Dates: start: 20071026, end: 20071029
  3. PLATELET TRANSFUSION (BLOOD AND RELATED PRODUCTS) [Suspect]
     Indication: THROMBOCYTOPENIA
  4. PERCOCET [Suspect]
     Indication: BACK PAIN
  5. SULFAMETHOXAZOLE [Suspect]
     Indication: PNEUMONIA
     Dosage: INTRAVENOUS
     Route: 042
     Dates: start: 20071026, end: 20071103
  6. MS CONTIN (MORPHINE SULFATE) (30 MILLIGRAM) [Concomitant]
  7. ASPIRIN [Concomitant]
  8. RBC TRANSFUSION (BLOOD CELLS, PACKED HUMAN) [Concomitant]
  9. MEROPENEM (MEROPENEM) [Concomitant]
  10. NEUPOGEN [Concomitant]
  11. OXYGEN (OXYGEN) [Concomitant]

REACTIONS (9)
  - BACK PAIN [None]
  - CARDIAC ARREST [None]
  - DISEASE PROGRESSION [None]
  - INTERSTITIAL LUNG DISEASE [None]
  - MULTIPLE MYELOMA [None]
  - PNEUMOCYSTIS JIROVECI PNEUMONIA [None]
  - RESPIRATORY ARREST [None]
  - THROMBOCYTOPENIA [None]
  - UNRESPONSIVE TO STIMULI [None]
